FAERS Safety Report 12401886 (Version 1)
Quarter: 2016Q2

REPORT INFORMATION
  Report Type: Spontaneous
  Country: US (occurrence: US)
  Receive Date: 20160525
  Receipt Date: 20160525
  Transmission Date: 20160815
  Serious: No
  Sender: FDA-Public Use
  Company Number: US-PFIZER INC-2016244073

PATIENT
  Age: 45 Year
  Sex: Male
  Weight: 147.42 kg

DRUGS (16)
  1. LYRICA [Suspect]
     Active Substance: PREGABALIN
     Dosage: 150 MG, 3X/DAY
     Route: 048
     Dates: end: 201603
  2. METOPROLOL. [Concomitant]
     Active Substance: METOPROLOL
     Indication: HYPERTENSION
     Dosage: 50 MG, ONE PILL 1X/DAY
     Route: 048
  3. CLONAZEPAM. [Concomitant]
     Active Substance: CLONAZEPAM
     Indication: ANXIETY
     Dosage: 2 MG UP TO 4 TIMES A DAY AS NEEDED
     Dates: start: 2007
  4. HYDROCHLOROTHIAZIDE. [Concomitant]
     Active Substance: HYDROCHLOROTHIAZIDE
     Indication: DIURETIC THERAPY
  5. PAROXETINE. [Concomitant]
     Active Substance: PAROXETINE
     Indication: DEPRESSION
     Dosage: 40 MG, 1X/DAY
     Route: 048
     Dates: start: 2007
  6. DOXEPIN [Concomitant]
     Active Substance: DOXEPIN
     Indication: ANXIETY
     Dosage: 4 MG ONE CAPSULE UP TO 4 TIMES A DAY WHEN NEEDED
     Route: 048
     Dates: start: 2010
  7. TIZANIDINE. [Concomitant]
     Active Substance: TIZANIDINE
     Indication: MUSCLE DISORDER
     Dosage: 4 MG ONE TABLET UP TO FOUR TIMES A DAY
     Route: 048
  8. LYRICA [Suspect]
     Active Substance: PREGABALIN
     Indication: DIABETIC NEUROPATHY
     Dosage: 150 MG, 4X/DAY
     Route: 048
  9. INVOKANA [Concomitant]
     Active Substance: CANAGLIFLOZIN
     Indication: DIABETES MELLITUS
     Dosage: 300 MG, 1X/DAY
     Route: 048
  10. HYDROCHLOROTHIAZIDE. [Concomitant]
     Active Substance: HYDROCHLOROTHIAZIDE
     Indication: HYPERTENSION
     Dosage: 25 MG, 2X/DAY
     Route: 048
     Dates: start: 2007
  11. IBUPROFEN. [Concomitant]
     Active Substance: IBUPROFEN
     Indication: PAIN
     Dosage: 800 MG ONE TABLET UP TO 4 TIMES A DAY
     Route: 048
     Dates: start: 2007
  12. NOVOLOG [Concomitant]
     Active Substance: INSULIN ASPART
     Indication: DIABETES MELLITUS
     Dosage: SLIDING SCALE BASED ON HIS BLOOD SUGAR
     Route: 058
     Dates: start: 2007
  13. VICTOZA [Concomitant]
     Active Substance: LIRAGLUTIDE
     Indication: DIABETES MELLITUS
     Dosage: 1.8 ML, 1X/DAY
     Route: 058
  14. LISINOPRIL. [Concomitant]
     Active Substance: LISINOPRIL
     Indication: HYPERTENSION
     Dosage: 40 MG, ONE TABLET, 2X/DAY
     Route: 048
     Dates: start: 2007
  15. AMITRIPTYLINE [Concomitant]
     Active Substance: AMITRIPTYLINE
     Indication: SLEEP DISORDER
     Dosage: 150 MG THREE TABLETS ONCE A DAY WHEN NEEDED
     Route: 048
     Dates: start: 2011
  16. OMEPRAZOLE. [Concomitant]
     Active Substance: OMEPRAZOLE
     Indication: DYSPEPSIA
     Dosage: 40 MG ONE CAPSULE, 2X/DAY
     Route: 048
     Dates: start: 2007

REACTIONS (1)
  - Insomnia [Not Recovered/Not Resolved]

NARRATIVE: CASE EVENT DATE: 201603
